FAERS Safety Report 4667707-2 (Version None)
Quarter: 2005Q2

REPORT INFORMATION
  Report Type: 
  Country: None (occurrence: None)
  Receive Date: 20050519
  Receipt Date: 20050519
  Transmission Date: 20051028
  Serious: Yes (Other)
  Sender: FDA-Public Use
  Company Number: None

PATIENT
  Age: 53 Year
  Sex: Female
  Weight: 88.4514 kg

DRUGS (3)
  1. PAROXETINE HCL [Suspect]
     Indication: PHOBIA
     Dosage: 1 TABLET PER DAY  ORAL
     Route: 048
     Dates: start: 20020115, end: 20050519
  2. PAROXETINE HCL [Suspect]
     Indication: POST-TRAUMATIC STRESS DISORDER
     Dosage: 1 TABLET PER DAY  ORAL
     Route: 048
     Dates: start: 20020115, end: 20050519
  3. PAROXETINE HCL [Suspect]

REACTIONS (4)
  - ABNORMAL DREAMS [None]
  - DIZZINESS [None]
  - EMOTIONAL DISORDER [None]
  - FATIGUE [None]
